FAERS Safety Report 14260352 (Version 1)
Quarter: 2017Q4

REPORT INFORMATION
  Report Type: Spontaneous
  Country: AT (occurrence: AT)
  Receive Date: 20171207
  Receipt Date: 20171207
  Transmission Date: 20180321
  Serious: Yes (Hospitalization)
  Sender: FDA-Public Use
  Company Number: AT-BAYER-2017-235299

PATIENT
  Age: 67 Year
  Sex: Male

DRUGS (1)
  1. CIPROXIN [Suspect]
     Active Substance: CIPROFLOXACIN
     Indication: PROSTATE EXAMINATION

REACTIONS (1)
  - Tendon operation [Unknown]

NARRATIVE: CASE EVENT DATE: 201709
